FAERS Safety Report 14778209 (Version 1)
Quarter: 2018Q2

REPORT INFORMATION
  Report Type: Spontaneous
  Country: JP (occurrence: JP)
  Receive Date: 20180419
  Receipt Date: 20180419
  Transmission Date: 20180711
  Serious: Yes (Other)
  Sender: FDA-Public Use
  Company Number: PHJP2018JP008544

PATIENT
  Age: 62 Year
  Sex: Male

DRUGS (1)
  1. NILOTINIB [Suspect]
     Active Substance: NILOTINIB
     Indication: CHRONIC MYELOID LEUKAEMIA
     Dosage: 800 MG, UNK
     Route: 048

REACTIONS (7)
  - Cerebral infarction [Unknown]
  - Carotid artery stenosis [Unknown]
  - Arterial stenosis [Unknown]
  - Angina unstable [Unknown]
  - Peripheral arterial occlusive disease [Unknown]
  - Vertebral artery occlusion [Unknown]
  - Coronary artery disease [Unknown]
